FAERS Safety Report 17969441 (Version 4)
Quarter: 2021Q1

REPORT INFORMATION
  Report Type: Spontaneous
  Country: US (occurrence: US)
  Receive Date: 20200701
  Receipt Date: 20210111
  Transmission Date: 20210419
  Serious: Yes (Other)
  Sender: FDA-Public Use
  Company Number: US-PFIZER INC-2020251082

PATIENT
  Age: 77 Year
  Sex: Female

DRUGS (2)
  1. XELJANZ [Suspect]
     Active Substance: TOFACITINIB CITRATE
     Indication: RHEUMATOID ARTHRITIS
     Dosage: 5 MG, 2X/DAY
     Route: 048
     Dates: start: 20200630
  2. XELJANZ [Suspect]
     Active Substance: TOFACITINIB CITRATE
     Dosage: 10 MG, 2X/DAY
     Route: 048
     Dates: start: 20200630

REACTIONS (12)
  - Pain [Recovering/Resolving]
  - Nodule [Unknown]
  - Product dose omission issue [Unknown]
  - Arthralgia [Recovering/Resolving]
  - Memory impairment [Unknown]
  - Loss of personal independence in daily activities [Unknown]
  - Finger deformity [Unknown]
  - Depressed mood [Recovered/Resolved]
  - Pain in extremity [Recovering/Resolving]
  - Joint swelling [Unknown]
  - Arthropathy [Unknown]
  - Malaise [Unknown]
